FAERS Safety Report 5319455-3 (Version None)
Quarter: 2007Q2

REPORT INFORMATION
  Report Type: 
  Country: None (occurrence: None)
  Receive Date: 20070508
  Receipt Date: 20070426
  Transmission Date: 20071010
  Serious: Yes (Other)
  Sender: FDA-Public Use
  Company Number: US-PFIZER INC-2007026081

PATIENT
  Sex: Male
  Weight: 99.8 kg

DRUGS (1)
  1. CHANTIX [Suspect]
     Indication: SMOKING CESSATION THERAPY
     Route: 048
     Dates: start: 20070202, end: 20070205

REACTIONS (11)
  - ANOREXIA [None]
  - BEDRIDDEN [None]
  - CHILLS [None]
  - DRUG ERUPTION [None]
  - HYPOAESTHESIA [None]
  - INSOMNIA [None]
  - PRURITUS [None]
  - PSORIASIS [None]
  - PYREXIA [None]
  - RASH [None]
  - WEIGHT DECREASED [None]
